FAERS Safety Report 8821411 (Version 3)
Quarter: 2012Q4

REPORT INFORMATION
  Report Type: 
  Country: JP (occurrence: JP)
  Receive Date: 20121002
  Receipt Date: 20121108
  Transmission Date: 20130627
  Serious: Yes (Death, Other)
  Sender: FDA-Public Use
  Company Number: JP-TEVA-361508ISR

PATIENT
  Age: 69 Year
  Sex: Male
  Weight: 70 kg

DRUGS (9)
  1. CISPLATIN [Suspect]
     Indication: GASTRIC CANCER
     Dosage: 85mg (day 8)
  2. CISPLATIN [Suspect]
     Indication: METASTASES TO LIVER
  3. CISPLATIN [Suspect]
     Indication: METASTASES TO LYMPH NODES
  4. CISPLATIN [Suspect]
     Indication: CHEMOTHERAPY
  5. GIMERACIL\OTERACIL\TEGAFUR [Suspect]
     Indication: GASTRIC CANCER
     Dosage: 80 Milligram Daily; 80 mg/day (days 1-21)
  6. GIMERACIL\OTERACIL\TEGAFUR [Suspect]
     Indication: METASTASES TO LIVER
  7. GIMERACIL\OTERACIL\TEGAFUR [Suspect]
     Indication: METASTASES TO LYMPH NODES
  8. GIMERACIL\OTERACIL\TEGAFUR [Suspect]
     Indication: CHEMOTHERAPY
  9. ALLOPURINOL [Concomitant]
     Dosage: 100 Milligram Daily; 100 mg/day

REACTIONS (2)
  - Tumour lysis syndrome [Not Recovered/Not Resolved]
  - Renal failure acute [Fatal]
